FAERS Safety Report 4393368-6 (Version None)
Quarter: 2004Q3

REPORT INFORMATION
  Report Type: 
  Country: None (occurrence: None)
  Receive Date: 20040707
  Receipt Date: 20040707
  Transmission Date: 20050211
  Serious: Yes (Life-Threatening)
  Sender: FDA-Public Use
  Company Number: None

PATIENT
  Sex: Male
  Weight: 81 kg

DRUGS (5)
  1. DOCETAXEL 80 MG [Suspect]
     Indication: OESOPHAGEAL CARCINOMA
     Dosage: 75 MG/M2 EVERY 21 D IV
     Route: 042
     Dates: start: 20031013, end: 20031111
  2. OXYCONTIN [Concomitant]
  3. OXYCODONE HCL [Concomitant]
  4. LOVENOX [Concomitant]
  5. COUMADIN [Concomitant]

REACTIONS (5)
  - COMA [None]
  - DISCOMFORT [None]
  - ERYTHEMA [None]
  - RESPIRATORY ARREST [None]
  - SOMNOLENCE [None]
